FAERS Safety Report 6988378-6 (Version None)
Quarter: 2010Q3

REPORT INFORMATION
  Report Type: 
  Country: None (occurrence: None)
  Receive Date: 20100916
  Receipt Date: 20100914
  Transmission Date: 20110219
  Serious: Yes (Other)
  Sender: FDA-Public Use
  Company Number: US-MERCK-1006USA01817

PATIENT
  Age: 75 Year
  Sex: Female

DRUGS (2)
  1. FOSAMAX [Suspect]
     Indication: OSTEOPOROSIS
     Route: 048
     Dates: start: 19920101, end: 20090901
  2. ALENDRONATE SODIUM [Suspect]
     Indication: OSTEOPOROSIS
     Route: 048
     Dates: start: 20080501, end: 20090901

REACTIONS (32)
  - ACTINIC KERATOSIS [None]
  - ARTHRALGIA [None]
  - BACK PAIN [None]
  - BLINDNESS [None]
  - BRONCHITIS CHRONIC [None]
  - CARBUNCLE [None]
  - CAROTID ARTERY OCCLUSION [None]
  - CAROTID ARTERY STENOSIS [None]
  - DYSTHYMIC DISORDER [None]
  - ESSENTIAL HYPERTENSION [None]
  - FALL [None]
  - FATIGUE [None]
  - FEMUR FRACTURE [None]
  - FURUNCLE [None]
  - HERPES ZOSTER [None]
  - HYPERCHOLESTEROLAEMIA [None]
  - HYPOTHYROIDISM [None]
  - LABORATORY TEST ABNORMAL [None]
  - MALAISE [None]
  - MALIGNANT HYPERTENSION [None]
  - MITRAL VALVE DISEASE MIXED [None]
  - MIXED HYPERLIPIDAEMIA [None]
  - NECK PAIN [None]
  - NEOPLASM SKIN [None]
  - NEUROPATHY PERIPHERAL [None]
  - OEDEMA [None]
  - POLLAKIURIA [None]
  - POLYMYALGIA RHEUMATICA [None]
  - PYREXIA [None]
  - RETINAL TEAR [None]
  - ROTATOR CUFF SYNDROME [None]
  - URINARY RETENTION [None]
